FAERS Safety Report 4341106-5 (Version None)
Quarter: 2004Q2

REPORT INFORMATION
  Report Type: 
  Country: None (occurrence: None)
  Receive Date: 20040419
  Receipt Date: 20040303
  Transmission Date: 20050107
  Serious: Yes (Other)
  Sender: FDA-Public Use
  Company Number: PHHO2004CA03403

PATIENT
  Age: 53 Year
  Sex: Female

DRUGS (4)
  1. CLOZARIL [Suspect]
     Indication: SCHIZOPHRENIA
     Route: 048
     Dates: start: 19960101
  2. CLOZARIL [Suspect]
     Route: 048
     Dates: start: 20040201
  3. CLOZARIL [Suspect]
     Dates: start: 19940501
  4. HALOPERIDOL [Concomitant]

REACTIONS (10)
  - ANGINA PECTORIS [None]
  - ARRHYTHMIA [None]
  - ASTHMA [None]
  - DRUG EFFECT DECREASED [None]
  - DYSPNOEA [None]
  - ELECTROCARDIOGRAM QT PROLONGED [None]
  - MITRAL VALVE INCOMPETENCE [None]
  - SINUS TACHYCARDIA [None]
  - TACHYCARDIA [None]
  - TRICUSPID VALVE INCOMPETENCE [None]
